FAERS Safety Report 8403414-8 (Version None)
Quarter: 2012Q2

REPORT INFORMATION
  Report Type: 
  Country: None (occurrence: None)
  Receive Date: 20120601
  Receipt Date: 20120523
  Transmission Date: 20120825
  Serious: Yes (Hospitalization, Other)
  Sender: FDA-Public Use
  Company Number: US-ABBOTT-12P-163-0938471-00

PATIENT
  Sex: Female
  Weight: 81.72 kg

DRUGS (15)
  1. VICODIN ES [Suspect]
     Indication: PROCEDURAL PAIN
     Dates: start: 20110101
  2. MORPHINE [Suspect]
     Indication: SPINAL FUSION SURGERY
     Dates: start: 20010101
  3. CODEINE [Suspect]
     Indication: PROCEDURAL PAIN
     Dates: start: 20110101
  4. XANAX [Concomitant]
     Indication: ANXIETY
  5. NEURONTIN [Suspect]
     Indication: INTRACRANIAL ANEURYSM
  6. LYRICA [Suspect]
     Indication: INTRACRANIAL ANEURYSM
     Dates: start: 20110101, end: 20120501
  7. NEURONTIN [Suspect]
     Indication: NERVE INJURY
     Dates: start: 20111001
  8. PAXIL [Concomitant]
     Indication: DEPRESSION
  9. TEGRETOL [Suspect]
     Indication: NERVE INJURY
     Dates: start: 20111001
  10. TEGRETOL [Suspect]
     Indication: INTRACRANIAL ANEURYSM
  11. LYRICA [Suspect]
     Indication: NERVE INJURY
     Dates: start: 20110501, end: 20111101
  12. LYRICA [Suspect]
     Dates: start: 20120507
  13. MORPHINE [Suspect]
     Indication: PROCEDURAL PAIN
  14. VICODIN ES [Suspect]
     Indication: SPINAL FUSION SURGERY
  15. CODEINE [Suspect]
     Indication: SPINAL FUSION SURGERY

REACTIONS (16)
  - CEREBROVASCULAR ACCIDENT [None]
  - RUPTURED CEREBRAL ANEURYSM [None]
  - FALL [None]
  - DRUG EFFECT DECREASED [None]
  - IMPAIRED DRIVING ABILITY [None]
  - NERVE INJURY [None]
  - HYPOAESTHESIA [None]
  - SPEECH DISORDER [None]
  - PAIN [None]
  - INTRACRANIAL ANEURYSM [None]
  - NEUROSTIMULATOR IMPLANTATION [None]
  - DEPRESSED LEVEL OF CONSCIOUSNESS [None]
  - FEELING ABNORMAL [None]
  - DRUG HYPERSENSITIVITY [None]
  - SPINAL FUSION SURGERY [None]
  - IMPAIRED WORK ABILITY [None]
